FAERS Safety Report 8820604 (Version 1)
Quarter: 2012Q4

REPORT INFORMATION
  Report Type: 
  Country: DE (occurrence: ES)
  Receive Date: 20121002
  Receipt Date: 20121002
  Transmission Date: 20130627
  Serious: No
  Sender: FDA-Public Use
  Company Number: ES-FRI-1000039127

PATIENT
  Age: 80 Year
  Sex: Male

DRUGS (1)
  1. ROFLUMILAST [Suspect]
     Indication: BRONCHITIS CHRONIC
     Dosage: 500 mcg
     Route: 048
     Dates: start: 2012

REACTIONS (3)
  - Weight decreased [Recovered/Resolved]
  - Pruritus generalised [Recovered/Resolved]
  - Off label use [Not Recovered/Not Resolved]
